FAERS Safety Report 8209861-1 (Version None)
Quarter: 2012Q1

REPORT INFORMATION
  Report Type: 
  Country: None (occurrence: None)
  Receive Date: 20120314
  Receipt Date: 20120308
  Transmission Date: 20120608
  Serious: Yes (Other)
  Sender: FDA-Public Use
  Company Number: US-ROCHE-1019576

PATIENT
  Sex: Female
  Weight: 74.91 kg

DRUGS (6)
  1. TYKERB [Concomitant]
     Indication: BREAST CANCER METASTATIC
     Route: 048
  2. XELODA [Suspect]
     Indication: BREAST CANCER METASTATIC
     Route: 048
     Dates: start: 20111013
  3. HERCEPTIN [Suspect]
     Indication: BREAST CANCER METASTATIC
     Route: 042
  4. METFORMIN [Concomitant]
  5. TYLENOL [Concomitant]
  6. GLUCOPHAGE [Concomitant]
     Route: 048

REACTIONS (7)
  - ORAL PAIN [None]
  - BREAST CANCER [None]
  - RASH GENERALISED [None]
  - DIARRHOEA [None]
  - SWELLING FACE [None]
  - ERYTHEMA [None]
  - HERPES ZOSTER [None]
